FAERS Safety Report 20724858 (Version 1)
Quarter: 2022Q2

REPORT INFORMATION
  Report Type: Spontaneous
  Country: IN (occurrence: IN)
  Receive Date: 20220419
  Receipt Date: 20220419
  Transmission Date: 20220721
  Serious: Yes (Death)
  Sender: FDA-Public Use
  Company Number: IN-PFIZER INC-202101191858

PATIENT
  Age: 74 Year
  Sex: Male

DRUGS (9)
  1. SUTENT [Suspect]
     Active Substance: SUNITINIB MALATE
     Indication: Metastatic renal cell carcinoma
     Dosage: 50 MG, CYCLIC (ONCE A DAY, 4 WEEKS ON, 2 WEEKS OFF)
     Route: 048
     Dates: start: 20210904, end: 202203
  2. SUTENT [Suspect]
     Active Substance: SUNITINIB MALATE
     Dosage: 50 MG, CYCLIC (ONCE A DAY, 2 WEEKS ON, 1 WEEK OFF SCHEDULE)
  3. PANTOCID DSR [Concomitant]
     Dosage: BBF
  4. ULTRACET [Concomitant]
     Active Substance: ACETAMINOPHEN\TRAMADOL HYDROCHLORIDE
     Dosage: UNK, 3X/DAY
  5. NEUGABA M [Concomitant]
     Dosage: 75 MG HS
  6. ALOC HEXAL [Concomitant]
     Dosage: UNK
  7. TRIHEXYPHENIDYL HYDROCHLORIDE [Concomitant]
     Active Substance: TRIHEXYPHENIDYL HYDROCHLORIDE
     Dosage: UNK
  8. CLOGAN [Concomitant]
     Dosage: 60 MG, 3X/DAY
  9. RENOSAVE P [Concomitant]
     Dosage: UNK, 2X/DAY

REACTIONS (5)
  - Death [Fatal]
  - Hepatitis B virus test positive [Unknown]
  - Illness [Unknown]
  - Platelet count decreased [Unknown]
  - Blood thyroid stimulating hormone increased [Unknown]

NARRATIVE: CASE EVENT DATE: 20220328
